FAERS Safety Report 7113914-9 (Version None)
Quarter: 2010Q4

REPORT INFORMATION
  Report Type: 
  Country: None (occurrence: None)
  Receive Date: 20101119
  Receipt Date: 20101117
  Transmission Date: 20110411
  Serious: Yes (Life-Threatening, Hospitalization)
  Sender: FDA-Public Use
  Company Number: LB-PFIZER INC-2010151497

PATIENT
  Sex: Male

DRUGS (5)
  1. CAMPTOSAR [Suspect]
     Indication: COLORECTAL CANCER METASTATIC
     Dosage: 140 MG, 1X/DAY
     Route: 042
     Dates: start: 20101025, end: 20101027
  2. ATROPINE [Concomitant]
     Dosage: 0.25 1X/DAY
     Route: 058
     Dates: start: 20101025, end: 20101027
  3. FLUOROURACIL [Concomitant]
     Dosage: 1700 MG, 1X/DAY
     Route: 042
     Dates: start: 20101025, end: 20101026
  4. LEUCOVORIN CALCIUM [Concomitant]
     Dosage: 350 MG, 1X/DAY
     Route: 042
     Dates: start: 20101025, end: 20101026
  5. AVASTIN [Concomitant]
     Dosage: 600 MG, 1X/DAY
     Route: 042
     Dates: start: 20101025, end: 20101025

REACTIONS (1)
  - BRADYCARDIA [None]
